FAERS Safety Report 7979412-5 (Version None)
Quarter: 2011Q4

REPORT INFORMATION
  Report Type: 
  Country: None (occurrence: None)
  Receive Date: 20111209
  Receipt Date: 20111129
  Transmission Date: 20120403
  Serious: Yes (Other)
  Sender: FDA-Public Use
  Company Number: 2011SP055695

PATIENT
  Age: 58 Year
  Sex: Male
  Weight: 108.8633 kg

DRUGS (12)
  1. LISINOPRIL [Concomitant]
  2. PEGASYS [Suspect]
     Indication: PRODUCT USED FOR UNKNOWN INDICATION
     Dosage: 180 MCG
  3. RIBAVIRIN [Suspect]
     Indication: PRODUCT USED FOR UNKNOWN INDICATION
     Dosage: QD
  4. ZOLOFT [Concomitant]
  5. LOPRESSOR [Concomitant]
  6. OXYCODONE HCL [Concomitant]
  7. AMLODIPINE [Concomitant]
  8. NICOTINE [Concomitant]
  9. TRAMADOL HCL [Concomitant]
  10. PRILOSEC [Concomitant]
  11. CLONIDINE [Concomitant]
  12. VICTRELIS [Suspect]
     Indication: PRODUCT USED FOR UNKNOWN INDICATION
     Dosage: 4 DF, TID, PO
     Route: 048

REACTIONS (3)
  - DIZZINESS [None]
  - FATIGUE [None]
  - AORTIC DISSECTION [None]
